FAERS Safety Report 17428109 (Version 1)
Quarter: 2020Q1

REPORT INFORMATION
  Report Type: Spontaneous
  Country: US (occurrence: US)
  Receive Date: 20200217
  Receipt Date: 20200217
  Transmission Date: 20200409
  Serious: Yes (Other)
  Sender: FDA-Public Use
  Company Number: US-009507513-2002USA003392

PATIENT
  Sex: Male

DRUGS (2)
  1. PRINIVIL [Suspect]
     Active Substance: LISINOPRIL
     Indication: HYPERTENSION
     Dosage: 10 OR 15 MG/DAY
     Route: 048
  2. PRINIVIL [Suspect]
     Active Substance: LISINOPRIL
     Dosage: 5 MG EVERY OTHER DAY
     Route: 048

REACTIONS (4)
  - Hypotension [Unknown]
  - Blood testosterone decreased [Unknown]
  - Asthenia [Unknown]
  - Erectile dysfunction [Unknown]
